FAERS Safety Report 22051077 (Version 1)
Quarter: 2023Q1

REPORT INFORMATION
  Report Type: Spontaneous
  Country: None (occurrence: GB)
  Receive Date: 20230301
  Receipt Date: 20230301
  Transmission Date: 20230418
  Serious: Yes (Other)
  Sender: FDA-Public Use
  Company Number: GB-Breckenridge Pharmaceutical, Inc.-2138593

PATIENT
  Sex: Female

DRUGS (5)
  1. OMEPRAZOLE [Suspect]
     Active Substance: OMEPRAZOLE
  2. FULVESTRANT [Concomitant]
     Active Substance: FULVESTRANT
  3. TAMOXIFEN CITRATE [Concomitant]
     Active Substance: TAMOXIFEN CITRATE
  4. TERBUTALINE SULFATE [Concomitant]
     Active Substance: TERBUTALINE SULFATE
  5. GOSERELIN [Concomitant]
     Active Substance: GOSERELIN

REACTIONS (8)
  - Malignant neoplasm progression [Unknown]
  - Diarrhoea [None]
  - Fatigue [None]
  - Rash [None]
  - Wound infection [None]
  - Impaired healing [None]
  - Infection [None]
  - Meningitis [None]
